FAERS Safety Report 9204131 (Version 1)
Quarter: 2013Q2

REPORT INFORMATION
  Report Type: Spontaneous
  Country: KR (occurrence: KR)
  Receive Date: 20130402
  Receipt Date: 20130402
  Transmission Date: 20140414
  Serious: Yes (Hospitalization)
  Sender: FDA-Public Use
  Company Number: KR-PFIZER INC-2004035340

PATIENT
  Age: 26 Year
  Sex: Male

DRUGS (3)
  1. IBUPROFEN [Suspect]
     Indication: HEADACHE
     Dosage: UNK
  2. IBUPROFEN [Suspect]
     Indication: MYALGIA
  3. DOXYCYCLINE [Concomitant]
     Indication: UPPER RESPIRATORY TRACT INFECTION

REACTIONS (2)
  - Eosinophilic pneumonia [Recovered/Resolved]
  - Pleuritic pain [Recovered/Resolved]
